FAERS Safety Report 4700783-7 (Version None)
Quarter: 2005Q2

REPORT INFORMATION
  Report Type: 
  Country: None (occurrence: None)
  Receive Date: 20050624
  Receipt Date: 20050304
  Transmission Date: 20051028
  Serious: Yes (Death)
  Sender: FDA-Public Use
  Company Number: 397746

PATIENT
  Age: 64 Year
  Sex: Male
  Weight: 58.5 kg

DRUGS (1)
  1. XELODA [Suspect]
     Indication: COLORECTAL CANCER METASTATIC
     Dates: end: 20041130

REACTIONS (3)
  - COLON CANCER METASTATIC [None]
  - DEATH [None]
  - DISEASE PROGRESSION [None]
